FAERS Safety Report 6570238-6 (Version None)
Quarter: 2010Q1

REPORT INFORMATION
  Report Type: 
  Country: None (occurrence: None)
  Receive Date: 20100204
  Receipt Date: 20100128
  Transmission Date: 20100710
  Serious: Yes (Other)
  Sender: FDA-Public Use
  Company Number: US-JNJFOC-20100112099

PATIENT
  Sex: Female

DRUGS (6)
  1. TYLENOL (CAPLET) [Suspect]
  2. TYLENOL (CAPLET) [Suspect]
     Indication: PAIN
  3. MOTRIN IB [Suspect]
  4. MOTRIN IB [Suspect]
     Indication: PAIN
  5. TYLENOL (CAPLET) [Suspect]
  6. TYLENOL (CAPLET) [Suspect]
     Indication: PAIN

REACTIONS (3)
  - ABDOMINAL DISCOMFORT [None]
  - GALLBLADDER DISORDER [None]
  - PRODUCT QUALITY ISSUE [None]
